FAERS Safety Report 13366064 (Version 1)
Quarter: 2017Q1

REPORT INFORMATION
  Report Type: Spontaneous
  Country: JP (occurrence: JP)
  Receive Date: 20170323
  Receipt Date: 20170323
  Transmission Date: 20170429
  Serious: Yes (Hospitalization, Other)
  Sender: FDA-Public Use
  Company Number: JP-MYLANLABS-2017M1018051

PATIENT

DRUGS (1)
  1. EPIPEN [Suspect]
     Active Substance: EPINEPHRINE
     Indication: ARTHROPOD STING
     Dosage: UNK
     Dates: start: 20160701, end: 20160701

REACTIONS (5)
  - Device failure [Unknown]
  - Needle issue [Unknown]
  - Product quality issue [Unknown]
  - Injection site bruising [Unknown]
  - Expired product administered [Unknown]

NARRATIVE: CASE EVENT DATE: 20160701
